FAERS Safety Report 12598612 (Version 1)
Quarter: 2016Q3

REPORT INFORMATION
  Report Type: Spontaneous
  Country: FR (occurrence: FR)
  Receive Date: 20160727
  Receipt Date: 20160727
  Transmission Date: 20161109
  Serious: Yes (Hospitalization, Other)
  Sender: FDA-Public Use
  Company Number: FR-GLAXOSMITHKLINE-FR2016GSK106386

PATIENT
  Age: 61 Year
  Sex: Female

DRUGS (6)
  1. VOLTARENE [Suspect]
     Active Substance: DICLOFENAC SODIUM
     Indication: PRODUCT USED FOR UNKNOWN INDICATION
     Dosage: 75 MG, UNK
     Route: 048
     Dates: start: 201205
  2. SERESTA [Suspect]
     Active Substance: OXAZEPAM
     Indication: PRODUCT USED FOR UNKNOWN INDICATION
     Dosage: 0.5 DF, UNK
  3. VOLTARENE [Suspect]
     Active Substance: DICLOFENAC SODIUM
     Dosage: 1 DF, BID
     Route: 048
     Dates: end: 20120606
  4. ESCITALOPRAM [Suspect]
     Active Substance: ESCITALOPRAM OXALATE
     Indication: PRODUCT USED FOR UNKNOWN INDICATION
     Dosage: 1 DF, QD
  5. ALTIM [Suspect]
     Active Substance: CORTIVAZOL
     Indication: ARTHRITIS
  6. NAPROSYNE [Suspect]
     Active Substance: NAPROXEN
     Indication: ARTHRITIS
     Dosage: UNK
     Route: 048
     Dates: end: 201205

REACTIONS (2)
  - Hepatitis [Recovered/Resolved]
  - Jaundice [Recovered/Resolved]

NARRATIVE: CASE EVENT DATE: 201206
